FAERS Safety Report 17324458 (Version 5)
Quarter: 2021Q4

REPORT INFORMATION
  Report Type: Spontaneous
  Country: PT (occurrence: PT)
  Receive Date: 20200127
  Receipt Date: 20211018
  Transmission Date: 20220303
  Serious: Yes (Hospitalization, Other)
  Sender: FDA-Public Use
  Company Number: PT-PFIZER INC-2019490593

PATIENT
  Age: 67 Year
  Sex: Female

DRUGS (3)
  1. METHOTREXATE [Suspect]
     Active Substance: METHOTREXATE
     Indication: Rheumatoid arthritis
     Dosage: 7.5 MG PER WEEK, TAKING MTX 7.5 MG DAILY INSTEAD OF WEEKLY
     Route: 048
  2. METHOTREXATE [Suspect]
     Active Substance: METHOTREXATE
     Dosage: 30 MILLIGRAM
     Route: 048
  3. DEFLAZACORT [Concomitant]
     Active Substance: DEFLAZACORT
     Indication: Rheumatoid arthritis
     Dosage: 30 MILLIGRAM, QD (30 MG, DAILY)
     Route: 048

REACTIONS (11)
  - Hepatic cytolysis [Recovered/Resolved]
  - Accidental poisoning [Unknown]
  - Pancytopenia [Recovered/Resolved]
  - Hypersensitivity pneumonitis [Unknown]
  - Encephalopathy [Unknown]
  - Toxicity to various agents [Recovering/Resolving]
  - Respiratory failure [Recovered/Resolved]
  - Stomatitis [Not Recovered/Not Resolved]
  - Toxic encephalopathy [Recovered/Resolved]
  - Accidental overdose [Recovered/Resolved]
  - Mouth ulceration [Not Recovered/Not Resolved]
